FAERS Safety Report 5727437-2 (Version None)
Quarter: 2008Q2

REPORT INFORMATION
  Report Type: 
  Country: None (occurrence: None)
  Receive Date: 20080505
  Receipt Date: 20080417
  Transmission Date: 20081010
  Serious: Yes (Hospitalization, Other)
  Sender: FDA-Public Use
  Company Number: CN-BAYER-200817040GPV

PATIENT
  Age: 65 Year
  Sex: Male
  Weight: 63 kg

DRUGS (3)
  1. FLUDARA [Suspect]
     Indication: T-CELL LYMPHOMA
     Route: 048
     Dates: start: 20071211, end: 20071213
  2. DEXAMETHASONE [Suspect]
     Indication: T-CELL LYMPHOMA
     Route: 048
     Dates: start: 20071211, end: 20071215
  3. A-THYMIC PEPTIDE [Concomitant]
     Indication: T-CELL LYMPHOMA
     Dates: start: 20071127

REACTIONS (2)
  - BONE MARROW FAILURE [None]
  - LUNG INFECTION [None]
